FAERS Safety Report 7960278-4 (Version None)
Quarter: 2011Q4

REPORT INFORMATION
  Report Type: 
  Country: None (occurrence: None)
  Receive Date: 20111206
  Receipt Date: 20111201
  Transmission Date: 20120403
  Serious: Yes (Disabling, Other)
  Sender: FDA-Public Use
  Company Number: US-TEVA-312011USA

PATIENT
  Sex: Female

DRUGS (3)
  1. IBANDRONATE SODIUM [Suspect]
     Dates: start: 20090101, end: 20100301
  2. ALENDRONATE SODIUM [Suspect]
     Dates: start: 20010101, end: 20080601
  3. ALENDRONIC ACID [Suspect]
     Dates: start: 20080701, end: 20081201

REACTIONS (5)
  - STRESS FRACTURE [None]
  - LOW TURNOVER OSTEOPATHY [None]
  - BONE DISORDER [None]
  - FEMUR FRACTURE [None]
  - TOXICITY TO VARIOUS AGENTS [None]
